FAERS Safety Report 7307783-1 (Version None)
Quarter: 2011Q1

REPORT INFORMATION
  Report Type: 
  Country: None (occurrence: None)
  Receive Date: 20110223
  Receipt Date: 20110216
  Transmission Date: 20110831
  Serious: Yes (Other)
  Sender: FDA-Public Use
  Company Number: CA-ABBOTT-11P-028-0703754-00

PATIENT
  Sex: Male
  Weight: 77.18 kg

DRUGS (8)
  1. HYDROCHLOROTHIAZIDE [Concomitant]
     Indication: ANTICOAGULANT THERAPY
     Route: 048
     Dates: start: 20101201
  2. VITAMIN B-12 [Concomitant]
     Indication: PRODUCT USED FOR UNKNOWN INDICATION
     Route: 058
     Dates: start: 20090101
  3. PANTOLOC [Concomitant]
     Indication: DYSPEPSIA
     Route: 048
     Dates: start: 20090101
  4. ATIVAN [Concomitant]
     Indication: PRODUCT USED FOR UNKNOWN INDICATION
     Route: 048
     Dates: start: 20070101
  5. HUMIRA [Suspect]
     Indication: CROHN'S DISEASE
     Route: 058
     Dates: start: 20081219
  6. HUMIRA [Suspect]
     Route: 058
     Dates: start: 20101018, end: 20101201
  7. PREDNISONE [Concomitant]
     Indication: CROHN'S DISEASE
     Route: 048
     Dates: start: 19770101
  8. AMLODIPINE [Concomitant]
     Indication: HYPERTENSION
     Route: 048
     Dates: start: 20101201

REACTIONS (5)
  - EMOTIONAL DISTRESS [None]
  - HYPERTENSION [None]
  - DRUG INEFFECTIVE [None]
  - ABDOMINAL PAIN [None]
  - INTESTINAL ANASTOMOSIS COMPLICATION [None]
